FAERS Safety Report 4523505-1 (Version None)
Quarter: 2004Q4

REPORT INFORMATION
  Report Type: 
  Country: None (occurrence: None)
  Receive Date: 20041117
  Receipt Date: 20040728
  Transmission Date: 20050328
  Serious: Yes (Hospitalization)
  Sender: FDA-Public Use
  Company Number: DE-JNJFOC-20040707487

PATIENT
  Age: 67 Year
  Sex: Male

DRUGS (13)
  1. LEVOFLOXACIN [Suspect]
     Indication: PNEUMONIA
     Dosage: INTRAVENOUS
     Route: 042
     Dates: start: 20040312, end: 20040315
  2. RISPERDAL [Concomitant]
  3. DURAGESIC [Concomitant]
  4. ACIPHEX [Concomitant]
  5. LASIX [Concomitant]
  6. LISINOPRIL [Concomitant]
  7. PROZAC [Concomitant]
  8. FELODIPINE [Concomitant]
  9. COUMADIN [Concomitant]
  10. LOPRESSOR [Concomitant]
  11. OXYCODONE (OXYCODONE) [Concomitant]
  12. ATIVAN [Concomitant]
  13. QUININE SULFATE (QUININE SULFATE) [Concomitant]

REACTIONS (3)
  - ACUTE MYOCARDIAL INFARCTION [None]
  - ANGINA PECTORIS [None]
  - SYNCOPE [None]
